FAERS Safety Report 8579724-0 (Version None)
Quarter: 2012Q3

REPORT INFORMATION
  Report Type: 
  Country: None (occurrence: None)
  Receive Date: 20120726
  Receipt Date: 20120717
  Transmission Date: 20120928
  Serious: Yes (Other)
  Sender: FDA-Public Use
  Company Number: 2010JP002726

PATIENT
  Age: 57 Year
  Sex: Female
  Weight: 55 kg

DRUGS (21)
  1. PREDNISOLONE [Concomitant]
  2. LASIX [Concomitant]
  3. OMEPRAZOLE [Concomitant]
  4. CANDESARTAN CILEXETIL [Concomitant]
  5. ALLOPURINOL [Concomitant]
  6. LOXONIN (LOXOPROFEN SODIUM) [Concomitant]
  7. LAXOBERON (SODIUM PICOSULFATE) [Concomitant]
  8. FERROMIA /00023520/ (FERROUS SODIUM CITRATE) [Concomitant]
  9. ALFAROL (ALFACALCIDOL) [Concomitant]
  10. ROHYPNOL (FLUNITRAZEPAM) [Concomitant]
  11. MYSLEE (ZOLPIDEM) [Concomitant]
  12. FAMOGAST (FAMOTIDINE) [Concomitant]
  13. TACROLIMUS [Suspect]
     Indication: LUPUS NEPHRITIS
     Dosage: 3 MG, /D, ORAL ; 2 MG, /D, ORAL
     Route: 048
     Dates: start: 20080416, end: 20080424
  14. TACROLIMUS [Suspect]
     Indication: LUPUS NEPHRITIS
     Dosage: 3 MG, /D, ORAL ; 2 MG, /D, ORAL
     Route: 048
     Dates: start: 20080425
  15. MAGMITT (MAGNESIUM OXIDE) [Concomitant]
  16. DEPAS (ETIZOLAM) [Concomitant]
  17. RABEPRAZOLE SODIUM [Concomitant]
  18. DESYREL [Concomitant]
  19. WARFARIN SODIUM [Concomitant]
  20. ASPIRIN [Concomitant]
  21. CRESTOR [Concomitant]

REACTIONS (2)
  - FIBROMYALGIA [None]
  - BETA-N-ACETYL-D-GLUCOSAMINIDASE INCREASED [None]
